FAERS Safety Report 6847804-3 (Version None)
Quarter: 2010Q3

REPORT INFORMATION
  Report Type: 
  Country: None (occurrence: None)
  Receive Date: 20100714
  Receipt Date: 20100701
  Transmission Date: 20110219
  Serious: Yes (Death)
  Sender: FDA-Public Use
  Company Number: UTC-001224

PATIENT
  Sex: Female
  Weight: 103.4 kg

DRUGS (17)
  1. TYVASO [Suspect]
     Indication: PULMONARY HYPERTENSION
     Dosage: 216 MCG (54 MCG, 4 IN 1 D), INHALATION
     Route: 055
  2. CELLCEPT [Concomitant]
  3. FOSAMAX [Concomitant]
  4. REQUIP [Concomitant]
  5. ZAROXOLYN [Concomitant]
  6. MULTIVITAMIN (MULTIVITAMIN) [Concomitant]
  7. AMBIEN [Concomitant]
  8. LASIX [Concomitant]
  9. IMODIUM [Concomitant]
  10. PREDNISONE TAB [Concomitant]
  11. ALBUTEROL [Concomitant]
  12. BUSPAR [Concomitant]
  13. VENTOLIN HFA (SALBUTAMOL SULFATE) [Concomitant]
  14. NEXIUM [Concomitant]
  15. OXYCODONE + APAP (OXYCOCET) [Concomitant]
  16. ADVIL LIQUI-GELS [Concomitant]
  17. CALCIUM + VITAMIN D (CALCIUM D3) [Concomitant]

REACTIONS (2)
  - DISEASE PROGRESSION [None]
  - PULMONARY HYPERTENSION [None]
